FAERS Safety Report 9632580 (Version 1)
Quarter: 2013Q4

REPORT INFORMATION
  Report Type: Spontaneous
  Country: GR (occurrence: GR)
  Receive Date: 20131018
  Receipt Date: 20131018
  Transmission Date: 20140711
  Serious: Yes (Other)
  Sender: FDA-Public Use
  Company Number: GR-ROCHE-1289329

PATIENT
  Age: 72 Year
  Sex: Male
  Weight: 170 kg

DRUGS (2)
  1. ROCEPHIN [Suspect]
     Indication: PRODUCT USED FOR UNKNOWN INDICATION
     Route: 065
  2. ROCEPHIN [Suspect]
     Route: 065

REACTIONS (3)
  - Affect lability [Recovering/Resolving]
  - Depression [Recovering/Resolving]
  - Oedema peripheral [Recovering/Resolving]
